FAERS Safety Report 7198629-3 (Version None)
Quarter: 2010Q4

REPORT INFORMATION
  Report Type: 
  Country: None (occurrence: None)
  Receive Date: 20101227
  Receipt Date: 20101217
  Transmission Date: 20110411
  Serious: Yes (Hospitalization, Other)
  Sender: FDA-Public Use
  Company Number: US-ABBOTT-10P-163-0692899-00

PATIENT

DRUGS (1)
  1. HUMIRA [Suspect]
     Indication: DRUG EXPOSURE DURING PREGNANCY
     Route: 064

REACTIONS (10)
  - ABO INCOMPATIBILITY [None]
  - CULTURE NEGATIVE [None]
  - DEHYDRATION [None]
  - ENDOTRACHEAL INTUBATION [None]
  - FEEDING DISORDER NEONATAL [None]
  - JAUNDICE [None]
  - PYELONEPHRITIS [None]
  - RESPIRATORY DISTRESS [None]
  - SEPSIS SYNDROME [None]
  - WEIGHT DECREASED [None]
